FAERS Safety Report 17667891 (Version 2)
Quarter: 2022Q3

REPORT INFORMATION
  Report Type: Spontaneous
  Country: CA (occurrence: CA)
  Receive Date: 20200414
  Receipt Date: 20220906
  Transmission Date: 20221027
  Serious: Yes (Hospitalization, Other)
  Sender: FDA-Public Use
  Company Number: CA-PFIZER INC-2020153225

PATIENT
  Age: 58 Year
  Sex: Female

DRUGS (3)
  1. XELJANZ [Suspect]
     Active Substance: TOFACITINIB CITRATE
     Indication: Psoriatic arthropathy
     Dosage: 5 MG, 2X/DAY
     Route: 048
     Dates: start: 201912
  2. XELJANZ [Suspect]
     Active Substance: TOFACITINIB CITRATE
     Dosage: 5 MG, 2X/DAY
     Route: 048
     Dates: start: 20191216
  3. METHOTREXATE [Concomitant]
     Active Substance: METHOTREXATE
     Dosage: UNK
     Route: 065
     Dates: start: 202003

REACTIONS (6)
  - Pneumonia [Not Recovered/Not Resolved]
  - Brain cancer metastatic [Unknown]
  - Systemic lupus erythematosus [Unknown]
  - Therapeutic product effect incomplete [Unknown]
  - Arthralgia [Unknown]
  - Fibromyalgia [Unknown]
